FAERS Safety Report 25485330 (Version 2)
Quarter: 2025Q3

REPORT INFORMATION
  Report Type: Spontaneous
  Country: GB (occurrence: GB)
  Receive Date: 20250626
  Receipt Date: 20250707
  Transmission Date: 20251021
  Serious: No
  Sender: MYLAN
  Company Number: GB-MYLANLABS-2025M1052782

PATIENT
  Sex: Male

DRUGS (2)
  1. CLOZARIL [Suspect]
     Active Substance: CLOZAPINE
     Indication: Schizophrenia
     Dosage: UNK, BID (100MG MORNING, 225MG EVENING)
     Dates: start: 20221011
  2. CLOZARIL [Suspect]
     Active Substance: CLOZAPINE
     Dosage: UNK, BID (100MG MORNING, 175MG EVENING FROM TODAY)
     Dates: start: 202506

REACTIONS (1)
  - Antipsychotic drug level increased [Unknown]

NARRATIVE: CASE EVENT DATE: 20250617
